FAERS Safety Report 6119796-6 (Version None)
Quarter: 2009Q1

REPORT INFORMATION
  Report Type: 
  Country: None (occurrence: None)
  Receive Date: 20090316
  Receipt Date: 20090304
  Transmission Date: 20090719
  Serious: Yes (Other)
  Sender: FDA-Public Use
  Company Number: AU-PFIZER INC-2009179167

PATIENT

DRUGS (2)
  1. LYRICA [Suspect]
     Indication: PAIN
     Dosage: NOCTE
  2. VENTOLIN (SALBUTAMOL SULFATE) [Concomitant]
     Dosage: UNK

REACTIONS (2)
  - DYSPNOEA [None]
  - WEIGHT INCREASED [None]
